FAERS Safety Report 8507188-1 (Version None)
Quarter: 2012Q3

REPORT INFORMATION
  Report Type: 
  Country: None (occurrence: None)
  Receive Date: 20120712
  Receipt Date: 20120620
  Transmission Date: 20120928
  Serious: Yes (Other)
  Sender: FDA-Public Use
  Company Number: PHHY2012US058853

PATIENT
  Sex: Female

DRUGS (1)
  1. ASPIRIN [Suspect]

REACTIONS (1)
  - LUPUS-LIKE SYNDROME [None]
